FAERS Safety Report 8617961-7 (Version None)
Quarter: 2012Q3

REPORT INFORMATION
  Report Type: 
  Country: None (occurrence: None)
  Receive Date: 20120824
  Receipt Date: 20120806
  Transmission Date: 20120928
  Serious: No
  Sender: FDA-Public Use
  Company Number: US-009507513-1208USA003146

PATIENT

DRUGS (5)
  1. PROZAC [Concomitant]
  2. VICTRELIS [Suspect]
     Indication: HEPATITIS C
     Dosage: 800 MG, Q8H
     Route: 048
     Dates: start: 20120101
  3. AMBIEN [Concomitant]
  4. RIBASPHERE [Suspect]
  5. PEG-INTRON [Suspect]
     Route: 048

REACTIONS (4)
  - FATIGUE [None]
  - INSOMNIA [None]
  - INFLUENZA LIKE ILLNESS [None]
  - DEPRESSION [None]
